FAERS Safety Report 13234117 (Version 7)
Quarter: 2018Q2

REPORT INFORMATION
  Report Type: Report from Study
  Country: CN (occurrence: CN)
  Receive Date: 20170215
  Receipt Date: 20180518
  Transmission Date: 20180711
  Serious: Yes (Hospitalization)
  Sender: FDA-Public Use
  Company Number: PHHY2017CN022308

PATIENT
  Age: 37 Year
  Sex: Male
  Weight: 70 kg

DRUGS (98)
  1. BASILIXIMAB [Suspect]
     Active Substance: BASILIXIMAB
     Dosage: 20 MG, QD
     Route: 065
     Dates: start: 20170117, end: 20170117
  2. METHYLPREDNISOLONE. [Suspect]
     Active Substance: METHYLPREDNISOLONE
     Dosage: 500 MG, QD
     Route: 065
     Dates: start: 20170115, end: 20170115
  3. METHYLPREDNISOLONE. [Suspect]
     Active Substance: METHYLPREDNISOLONE
     Dosage: 500 MG, QD
     Route: 065
     Dates: start: 20170116, end: 20170116
  4. TACROLIMUS. [Suspect]
     Active Substance: TACROLIMUS
     Dosage: 6 MG, QD
     Route: 065
     Dates: start: 20170211, end: 20170217
  5. TACROLIMUS. [Suspect]
     Active Substance: TACROLIMUS
     Dosage: 6 MG, QD
     Route: 065
     Dates: start: 20170308
  6. PREDNISONE ACETATE [Suspect]
     Active Substance: PREDNISONE ACETATE
     Dosage: 20 MG, QD
     Route: 065
     Dates: start: 20170203, end: 20170204
  7. ASPIRIN. [Concomitant]
     Active Substance: ASPIRIN
     Indication: THROMBOSIS PROPHYLAXIS
     Dosage: 100 MG, QD
     Route: 048
     Dates: start: 20170114
  8. POTASSIUM CHLORIDE. [Concomitant]
     Active Substance: POTASSIUM CHLORIDE
     Dosage: 0.3 G, TEMPORARILY 4 TIMES
     Route: 065
     Dates: start: 20170201, end: 20170201
  9. ROCEPHIN [Concomitant]
     Active Substance: CEFTRIAXONE SODIUM
     Indication: INFECTION PROPHYLAXIS
     Dosage: 2 G, QD
     Route: 042
     Dates: start: 20170113, end: 20170121
  10. SODIUM BICARBONATE. [Concomitant]
     Active Substance: SODIUM BICARBONATE
     Dosage: 125 ML, QD
     Route: 042
     Dates: start: 20170115, end: 20170115
  11. SULFAMETHOXAZOLE [Concomitant]
     Active Substance: SULFAMETHOXAZOLE
     Indication: PROPHYLAXIS
     Dosage: 0.48 G, QD
     Route: 048
     Dates: start: 20170122
  12. LIDOCAINE HYDROCHLORIDE. [Concomitant]
     Active Substance: LIDOCAINE HYDROCHLORIDE
     Dosage: 0.3 G, QD
     Route: 065
     Dates: start: 20170203, end: 20170203
  13. ALBUMIN HUMAN [Concomitant]
     Active Substance: ALBUMIN HUMAN
     Dosage: 50 MG, QD
     Route: 042
     Dates: start: 20170203, end: 20170203
  14. MYFORTIC [Suspect]
     Active Substance: MYCOPHENOLATE SODIUM
     Indication: IMMUNOSUPPRESSANT DRUG THERAPY
     Dosage: 1440 MG, QD
     Route: 048
     Dates: start: 20170115, end: 20170123
  15. METHYLPREDNISOLONE. [Suspect]
     Active Substance: METHYLPREDNISOLONE
     Dosage: 250 MG, QD
     Route: 065
     Dates: start: 20170117, end: 20170118
  16. TACROLIMUS. [Suspect]
     Active Substance: TACROLIMUS
     Dosage: 6 MG, QD
     Route: 065
     Dates: start: 20170115, end: 20170123
  17. HEPARIN SODIUM. [Concomitant]
     Active Substance: HEPARIN SODIUM
     Dosage: 50 OT, QD
     Route: 042
     Dates: start: 20170201, end: 20170201
  18. OMEPRAZOLE. [Concomitant]
     Active Substance: OMEPRAZOLE
     Indication: PROPHYLAXIS
     Dosage: 40 MG, QD
     Route: 042
     Dates: start: 20170113, end: 20170113
  19. CALCIUM GLUCONATE. [Concomitant]
     Active Substance: CALCIUM GLUCONATE
     Dosage: 5 G, QD
     Route: 042
     Dates: start: 20170201, end: 20170201
  20. TORASEMIDE [Concomitant]
     Active Substance: TORSEMIDE
     Dosage: 20 MG, QD
     Route: 041
     Dates: start: 20170204, end: 20170204
  21. CEFOPERAZONE SODIUM AND SULBACTAM SODIUM [Concomitant]
     Active Substance: CEFOPERAZONE SODIUM\SULBACTAM SODIUM
     Indication: PROPHYLAXIS
     Dosage: 1.5 G, QD
     Route: 065
     Dates: start: 20170129, end: 20170129
  22. MAGNESIUM SULFATE. [Concomitant]
     Active Substance: MAGNESIUM SULFATE
     Indication: HAEMOFILTRATION
     Dosage: 1.25 MG, TEMPORARILY 6 TIMES
     Route: 065
     Dates: start: 20170201, end: 20170201
  23. MYFORTIC [Suspect]
     Active Substance: MYCOPHENOLATE SODIUM
     Dosage: 1080 MG, QD
     Route: 048
     Dates: start: 20170124, end: 20170131
  24. METHYLPREDNISOLONE. [Suspect]
     Active Substance: METHYLPREDNISOLONE
     Indication: IMMUNOSUPPRESSANT DRUG THERAPY
     Dosage: 1000 MG, QD
     Route: 065
     Dates: start: 20170113, end: 20170113
  25. TACROLIMUS. [Suspect]
     Active Substance: TACROLIMUS
     Indication: IMMUNOSUPPRESSANT DRUG THERAPY
     Dosage: 3 MG, QD
     Route: 065
     Dates: start: 20170114, end: 20170114
  26. ALPROSTADIL. [Concomitant]
     Active Substance: ALPROSTADIL
     Indication: THROMBOSIS PROPHYLAXIS
     Dosage: 5 UG, BID
     Route: 065
     Dates: start: 20170113, end: 20170113
  27. ALPROSTADIL. [Concomitant]
     Active Substance: ALPROSTADIL
     Dosage: 5 UG, TEMPORARILY 3 TIMES
     Route: 065
     Dates: start: 20170115, end: 20170121
  28. AMBROXOL HYDROCHLORIDE [Concomitant]
     Active Substance: AMBROXOL HYDROCHLORIDE
     Indication: PROPHYLAXIS
     Dosage: 30 MG, QD
     Route: 048
     Dates: start: 20170209, end: 20170210
  29. HEPARIN SODIUM. [Concomitant]
     Active Substance: HEPARIN SODIUM
     Indication: PRODUCT USED FOR UNKNOWN INDICATION
     Dosage: 12.5 OT, QD
     Route: 065
     Dates: start: 20170113, end: 20170113
  30. POTASSIUM CHLORIDE. [Concomitant]
     Active Substance: POTASSIUM CHLORIDE
     Dosage: 10 MG, BID
     Route: 042
     Dates: start: 20170203, end: 20170204
  31. CALCIUM GLUCONATE. [Concomitant]
     Active Substance: CALCIUM GLUCONATE
     Indication: HYPOCALCAEMIA
     Dosage: 1 G, TEMPORARILY 6 TIMES
     Route: 042
     Dates: start: 20170113, end: 20170113
  32. CALCIUM GLUCONATE. [Concomitant]
     Active Substance: CALCIUM GLUCONATE
     Dosage: 1 G, QD
     Route: 042
     Dates: start: 20170114, end: 20170116
  33. SODIUM BICARBONATE. [Concomitant]
     Active Substance: SODIUM BICARBONATE
     Dosage: 250 ML, QD
     Route: 042
     Dates: start: 20170203, end: 20170203
  34. GANCICLOVIR. [Concomitant]
     Active Substance: GANCICLOVIR
     Dosage: 0.5 G, TID
     Route: 048
     Dates: start: 20170220
  35. ADALAT [Concomitant]
     Active Substance: NIFEDIPINE
     Dosage: 30 MG, BID
     Route: 048
     Dates: start: 20170124
  36. BENZBROMARONE [Concomitant]
     Active Substance: BENZBROMARONE
     Indication: BLOOD URIC ACID INCREASED
     Dosage: 50 MG, QD
     Route: 048
     Dates: start: 20170117, end: 20170219
  37. KABIVEN PI [Concomitant]
     Indication: PRODUCT USED FOR UNKNOWN INDICATION
     Dosage: 1440 ML, QD
     Route: 042
     Dates: start: 20170130, end: 20170130
  38. ALBUMIN HUMAN [Concomitant]
     Active Substance: ALBUMIN HUMAN
     Indication: PRODUCT USED FOR UNKNOWN INDICATION
     Dosage: 10 G, QD
     Route: 042
     Dates: start: 20170203, end: 20170203
  39. MYFORTIC [Suspect]
     Active Substance: MYCOPHENOLATE SODIUM
     Dosage: 540 MG, BID
     Route: 048
     Dates: start: 20170217
  40. PREDNISONE ACETATE [Suspect]
     Active Substance: PREDNISONE ACETATE
     Dosage: 15 MG, QD
     Route: 048
     Dates: start: 20170205
  41. ALPROSTADIL. [Concomitant]
     Active Substance: ALPROSTADIL
     Indication: THROMBOSIS PROPHYLAXIS
     Dosage: 5 UG, TEMPORARILY 3 TIMES
     Route: 065
     Dates: start: 20170114, end: 20170114
  42. POTASSIUM CHLORIDE. [Concomitant]
     Active Substance: POTASSIUM CHLORIDE
     Dosage: 1 G, TEMPORARILY 5 TIMES
     Route: 042
     Dates: start: 20170114, end: 20170114
  43. POTASSIUM CHLORIDE. [Concomitant]
     Active Substance: POTASSIUM CHLORIDE
     Dosage: 1 G, TEMPORARILY 4 TIMES
     Route: 042
     Dates: start: 20170115, end: 20170115
  44. POTASSIUM CHLORIDE. [Concomitant]
     Active Substance: POTASSIUM CHLORIDE
     Dosage: 1 G, BID
     Route: 042
     Dates: start: 20170129, end: 20170129
  45. GANCICLOVIR. [Concomitant]
     Active Substance: GANCICLOVIR
     Indication: INFECTION PROPHYLAXIS
     Dosage: 0.25 G, TID
     Route: 048
     Dates: start: 20170203, end: 20170219
  46. DIOVAN [Concomitant]
     Active Substance: VALSARTAN
     Indication: BLOOD PRESSURE INCREASED
     Dosage: 80 MG, BID
     Route: 048
     Dates: start: 20170115
  47. FUROSEMIDE. [Concomitant]
     Active Substance: FUROSEMIDE
     Indication: POLYURIA
     Dosage: 20 MG, BID
     Route: 041
     Dates: start: 20170202, end: 20170202
  48. BENZBROMARONE [Concomitant]
     Active Substance: BENZBROMARONE
     Dosage: 50 MG, QD
     Route: 048
     Dates: start: 20170306
  49. DIMETHICONE. [Concomitant]
     Active Substance: DIMETHICONE
     Indication: FLATULENCE
     Dosage: 150 MG, QD
     Route: 048
     Dates: start: 20170128, end: 20170128
  50. SMECTITE [Concomitant]
     Active Substance: MONTMORILLONITE
     Indication: DIARRHOEA
     Dosage: 3 G, BID
     Route: 048
     Dates: start: 20170313, end: 20170313
  51. BASILIXIMAB [Suspect]
     Active Substance: BASILIXIMAB
     Indication: RENAL TRANSPLANT
     Dosage: 20 MG, QD
     Route: 065
     Dates: start: 20170113, end: 20170113
  52. TACROLIMUS. [Suspect]
     Active Substance: TACROLIMUS
     Dosage: 7 MG, QD
     Route: 065
     Dates: start: 20170206, end: 20170210
  53. AMBROXOL HYDROCHLORIDE [Concomitant]
     Active Substance: AMBROXOL HYDROCHLORIDE
     Dosage: 30 MG, TID
     Route: 065
     Dates: start: 20170114, end: 20170119
  54. FRUCTOSE [Concomitant]
     Active Substance: FRUCTOSE
     Indication: PRODUCT USED FOR UNKNOWN INDICATION
     Dosage: 75 G, QD
     Route: 042
     Dates: start: 20170113, end: 20170113
  55. POTASSIUM CHLORIDE. [Concomitant]
     Active Substance: POTASSIUM CHLORIDE
     Dosage: 1 G, BID
     Route: 042
     Dates: start: 20170209, end: 20170209
  56. CALCIUM GLUCONATE. [Concomitant]
     Active Substance: CALCIUM GLUCONATE
     Dosage: 1 G, QD
     Route: 042
     Dates: start: 20170209, end: 20170209
  57. URAPIDIL HYDROCHLORIDE [Concomitant]
     Active Substance: URAPIDIL HYDROCHLORIDE
     Indication: BLOOD PRESSURE INCREASED
     Dosage: 250 MG, QD
     Route: 042
     Dates: start: 20170113, end: 20170113
  58. LANSOPRAZOLE. [Concomitant]
     Active Substance: LANSOPRAZOLE
     Indication: PROPHYLAXIS
     Dosage: 30 MG, QD
     Route: 042
     Dates: start: 20170113, end: 20170121
  59. TORASEMIDE [Concomitant]
     Active Substance: TORSEMIDE
     Indication: POLYURIA
     Dosage: 20 MG, TID
     Route: 041
     Dates: start: 20170114, end: 20170114
  60. FUROSEMIDE. [Concomitant]
     Active Substance: FUROSEMIDE
     Indication: POLYURIA
     Dosage: 20 MG, TID
     Route: 048
     Dates: start: 20170116
  61. KABIVEN PI [Concomitant]
     Dosage: 1440 ML, QD
     Route: 042
     Dates: start: 20170201, end: 20170201
  62. MYFORTIC [Suspect]
     Active Substance: MYCOPHENOLATE SODIUM
     Indication: RENAL TRANSPLANT
     Dosage: 720 MG, QD
     Route: 065
     Dates: start: 20170113, end: 20170114
  63. TACROLIMUS. [Suspect]
     Active Substance: TACROLIMUS
     Dosage: 7 MG, QD
     Route: 065
     Dates: start: 20170124, end: 20170202
  64. TACROLIMUS. [Suspect]
     Active Substance: TACROLIMUS
     Dosage: 7 MG, QD
     Route: 065
     Dates: start: 20170218, end: 20170305
  65. PREDNISONE ACETATE [Suspect]
     Active Substance: PREDNISONE ACETATE
     Indication: IMMUNOSUPPRESSANT DRUG THERAPY
     Dosage: 30 MG, QD
     Route: 065
     Dates: start: 20170119, end: 20170122
  66. CALCIUM GLUCONATE. [Concomitant]
     Active Substance: CALCIUM GLUCONATE
     Dosage: 10 ML, QD
     Route: 042
     Dates: start: 20170205, end: 20170205
  67. TORASEMIDE [Concomitant]
     Active Substance: TORSEMIDE
     Dosage: 20 MG, QID
     Route: 041
     Dates: start: 20170115, end: 20170121
  68. CEFOPERAZONE SODIUM AND SULBACTAM SODIUM [Concomitant]
     Active Substance: CEFOPERAZONE SODIUM\SULBACTAM SODIUM
     Dosage: 1.5 G, QD
     Route: 042
     Dates: start: 20170208, end: 20170208
  69. LIDOCAINE HYDROCHLORIDE. [Concomitant]
     Active Substance: LIDOCAINE HYDROCHLORIDE
     Indication: ANAESTHESIA
     Dosage: 0.2 G, QD
     Route: 065
     Dates: start: 20170130, end: 20170130
  70. TACROLIMUS. [Suspect]
     Active Substance: TACROLIMUS
     Dosage: 6 MG, QD
     Route: 065
     Dates: start: 20170203, end: 20170205
  71. TACROLIMUS. [Suspect]
     Active Substance: TACROLIMUS
     Dosage: 5 MG, QD
     Route: 065
     Dates: start: 20170306, end: 20170307
  72. PREDNISONE ACETATE [Suspect]
     Active Substance: PREDNISONE ACETATE
     Dosage: 25 MG, QD
     Route: 065
     Dates: start: 20170123, end: 20170202
  73. AMBROXOL HYDROCHLORIDE [Concomitant]
     Active Substance: AMBROXOL HYDROCHLORIDE
     Indication: PRODUCTIVE COUGH
     Dosage: 30 MG, BID
     Route: 042
     Dates: start: 20170113, end: 20170113
  74. POTASSIUM CHLORIDE. [Concomitant]
     Active Substance: POTASSIUM CHLORIDE
     Indication: PRODUCT USED FOR UNKNOWN INDICATION
     Dosage: 1 G, TEMPORARILY 7 TIMES
     Route: 042
     Dates: start: 20170113, end: 20170113
  75. POTASSIUM CHLORIDE. [Concomitant]
     Active Substance: POTASSIUM CHLORIDE
     Dosage: 1 G, BID
     Route: 042
     Dates: start: 20170116, end: 20170116
  76. POTASSIUM CHLORIDE. [Concomitant]
     Active Substance: POTASSIUM CHLORIDE
     Dosage: 10 MG, BID
     Route: 042
     Dates: start: 20170130, end: 20170130
  77. POTASSIUM CHLORIDE. [Concomitant]
     Active Substance: POTASSIUM CHLORIDE
     Dosage: 1 G, BID
     Route: 042
     Dates: start: 20170202, end: 20170202
  78. POTASSIUM CHLORIDE. [Concomitant]
     Active Substance: POTASSIUM CHLORIDE
     Dosage: 1 G, BID
     Route: 042
     Dates: start: 20170205, end: 20170205
  79. URAPIDIL HYDROCHLORIDE [Concomitant]
     Active Substance: URAPIDIL HYDROCHLORIDE
     Dosage: 250 ML, BID
     Route: 042
     Dates: start: 20170114, end: 20170114
  80. PHOSPHOCREATINE SODIUM [Concomitant]
     Active Substance: PHOSPHOCREATINE SODIUM
     Indication: PROPHYLAXIS
     Dosage: 2 G, QD
     Route: 042
     Dates: start: 20170113, end: 20170113
  81. LEVOCARNITINE. [Concomitant]
     Active Substance: LEVOCARNITINE
     Indication: PROPHYLAXIS
     Dosage: 2 G, BID
     Route: 042
     Dates: start: 20170113, end: 20170113
  82. GANCICLOVIR. [Concomitant]
     Active Substance: GANCICLOVIR
     Indication: PRODUCT USED FOR UNKNOWN INDICATION
     Dosage: 0.25 G, BID
     Route: 042
     Dates: start: 20170114, end: 20170114
  83. ADALAT [Concomitant]
     Active Substance: NIFEDIPINE
     Indication: BLOOD PRESSURE INCREASED
     Dosage: 30 MG, BID
     Route: 048
     Dates: start: 20170115, end: 20170123
  84. MICAFUNGIN SODIUM [Concomitant]
     Active Substance: MICAFUNGIN SODIUM
     Indication: INFECTION PROPHYLAXIS
     Dosage: 100 MG, QD
     Route: 042
     Dates: start: 20170115, end: 20170121
  85. FUROSEMIDE. [Concomitant]
     Active Substance: FUROSEMIDE
     Dosage: 20 MG, QD
     Route: 041
     Dates: start: 20170203, end: 20170203
  86. CEFOPERAZONE SODIUM AND SULBACTAM SODIUM [Concomitant]
     Active Substance: CEFOPERAZONE SODIUM\SULBACTAM SODIUM
     Indication: SKIN TEST
     Dosage: 3 G, BID
     Route: 042
     Dates: start: 20170129, end: 20170204
  87. CEFOPERAZONE SODIUM AND SULBACTAM SODIUM [Concomitant]
     Active Substance: CEFOPERAZONE SODIUM\SULBACTAM SODIUM
     Dosage: 1.5 G, BID
     Route: 042
     Dates: start: 20170209, end: 20170216
  88. LIDOCAINE HYDROCHLORIDE. [Concomitant]
     Active Substance: LIDOCAINE HYDROCHLORIDE
     Dosage: 0.6 G, QD
     Route: 065
     Dates: start: 20170201, end: 20170201
  89. ALBUMIN HUMAN [Concomitant]
     Active Substance: ALBUMIN HUMAN
     Dosage: 10 G, BID
     Route: 042
     Dates: start: 20170204, end: 20170204
  90. ALBUMIN HUMAN [Concomitant]
     Active Substance: ALBUMIN HUMAN
     Dosage: 10 G, BID
     Route: 042
     Dates: start: 20170205, end: 20170205
  91. BERBERINE HYDROCHLORIDE [Concomitant]
     Active Substance: BERBERINE
     Indication: DIARRHOEA
     Dosage: 0.3 G, QD
     Route: 048
     Dates: start: 20170321, end: 20170323
  92. METHYLPREDNISOLONE. [Suspect]
     Active Substance: METHYLPREDNISOLONE
     Dosage: 500 MG, QD
     Route: 065
     Dates: start: 20170114, end: 20170114
  93. POTASSIUM CHLORIDE. [Concomitant]
     Active Substance: POTASSIUM CHLORIDE
     Dosage: 10 MG, QD
     Route: 042
     Dates: start: 20170128, end: 20170128
  94. POTASSIUM CHLORIDE. [Concomitant]
     Active Substance: POTASSIUM CHLORIDE
     Dosage: 1 G, BID
     Route: 042
     Dates: start: 20170131, end: 20170131
  95. ROCEPHIN [Concomitant]
     Active Substance: CEFTRIAXONE SODIUM
     Dosage: 2 G, QD
     Route: 042
     Dates: start: 20170128, end: 20170128
  96. SODIUM BICARBONATE. [Concomitant]
     Active Substance: SODIUM BICARBONATE
     Indication: PRODUCT USED FOR UNKNOWN INDICATION
     Dosage: 750 ML, QD
     Route: 065
     Dates: start: 20170113, end: 20170114
  97. SODIUM BICARBONATE. [Concomitant]
     Active Substance: SODIUM BICARBONATE
     Dosage: 250 ML, TEMPORARILY 6 TIMES
     Route: 065
     Dates: start: 20170201, end: 20170201
  98. ALBUMIN HUMAN [Concomitant]
     Active Substance: ALBUMIN HUMAN
     Dosage: 50 MG, QD
     Route: 042
     Dates: start: 20170204, end: 20170204

REACTIONS (13)
  - Blood triglycerides increased [Unknown]
  - Intestinal obstruction [Recovered/Resolved]
  - Urinary tract infection [Recovered/Resolved]
  - Blood glucose increased [Unknown]
  - Acute kidney injury [Recovered/Resolved]
  - Body temperature increased [Not Recovered/Not Resolved]
  - Blood cholesterol decreased [Unknown]
  - Urinary tract infection [Recovered/Resolved]
  - Alanine aminotransferase increased [Unknown]
  - Low density lipoprotein decreased [Unknown]
  - Hypoproteinaemia [Recovered/Resolved]
  - Post procedural urine leak [Recovered/Resolved]
  - Haemoglobin decreased [Unknown]

NARRATIVE: CASE EVENT DATE: 20170116
